FAERS Safety Report 8209612-0 (Version None)
Quarter: 2012Q1

REPORT INFORMATION
  Report Type: 
  Country: None (occurrence: None)
  Receive Date: 20120314
  Receipt Date: 20120229
  Transmission Date: 20120608
  Serious: Yes (Other)
  Sender: FDA-Public Use
  Company Number: SI-ELI_LILLY_AND_COMPANY-SI201201002589

PATIENT
  Age: 75 Year
  Sex: Female
  Weight: 65 kg

DRUGS (2)
  1. CYMBALTA [Suspect]
     Dosage: UNK, UNKNOWN
     Dates: start: 20111219, end: 20120105
  2. LEKOPTIN [Concomitant]
     Dosage: 240 DF, UNKNOWN

REACTIONS (3)
  - SYNCOPE [None]
  - TACHYCARDIA [None]
  - EXTRASYSTOLES [None]
